FAERS Safety Report 21789569 (Version 2)
Quarter: 2023Q1

REPORT INFORMATION
  Report Type: Spontaneous
  Country: DE (occurrence: DE)
  Receive Date: 20221228
  Receipt Date: 20230105
  Transmission Date: 20230418
  Serious: Yes (Hospitalization, Other)
  Sender: FDA-Public Use
  Company Number: DE-PFIZER INC-PV202200131795

PATIENT
  Sex: Female

DRUGS (14)
  1. INFLIXIMAB [Suspect]
     Active Substance: INFLIXIMAB
     Dosage: 1600 MG, CYCLIC (1600 MG, BIW (800 MILLIGRAM, BIW (EVERY 2 WEEKS))
     Dates: start: 20220106, end: 20220120
  2. NAPROXEN [Suspect]
     Active Substance: NAPROXEN
     Dosage: 500 MG, QD (500 MILLIGRAM, QD)
     Dates: start: 20220219, end: 20220226
  3. ETORICOXIB [Suspect]
     Active Substance: ETORICOXIB
     Indication: Psoriatic arthropathy
     Dosage: 120 MG, 1X/DAY
     Route: 048
     Dates: start: 20211214, end: 20220218
  4. ETORICOXIB [Suspect]
     Active Substance: ETORICOXIB
     Dosage: 120 MG, 1X/DAY
     Route: 048
     Dates: start: 20220227
  5. SIMPONI [Suspect]
     Active Substance: GOLIMUMAB
     Indication: Psoriatic arthropathy
     Dosage: 50 MG, Q4W (50 MILLIGRAM, EVERY 4 WEEKS) (LAST DOSE ON 09MAR2022)
     Dates: start: 20220209
  6. RINVOQ [Suspect]
     Active Substance: UPADACITINIB
     Indication: Psoriatic arthropathy
     Dosage: 15 MG, 1X/DAY
     Dates: start: 20211029
  7. RINVOQ [Suspect]
     Active Substance: UPADACITINIB
     Dosage: 15 MG, 1X/DAY (15 MILLIGRAM, QD) (LAST DOSE ON 21APR2022)
     Dates: start: 20220209
  8. TREMFYA [Suspect]
     Active Substance: GUSELKUMAB
     Dosage: 100 MG, CYCLIC (100 MILLIGRAM, EVERY 8 WEEKS)
     Dates: start: 20220309
  9. STELARA [Concomitant]
     Active Substance: USTEKINUMAB
     Dosage: UNK
     Dates: start: 20211223
  10. PANTOPRAZOLE SODIUM [Concomitant]
     Active Substance: PANTOPRAZOLE SODIUM
     Dosage: UNK
  11. CHOLECALCIFEROL [Concomitant]
     Active Substance: CHOLECALCIFEROL
     Dosage: UNK
  12. PREDNISOLONE [Concomitant]
     Active Substance: PREDNISOLONE
     Dosage: UNK
  13. PREDNISONE [Concomitant]
     Active Substance: PREDNISONE
     Dosage: UNK
  14. BISOPROLOL [Concomitant]
     Active Substance: BISOPROLOL
     Dosage: UNK

REACTIONS (5)
  - Arthralgia [Recovered/Resolved]
  - Dyspnoea at rest [Unknown]
  - Anaphylactic reaction [Recovered/Resolved]
  - Dyspnoea exertional [Unknown]
  - Apathy [Unknown]

NARRATIVE: CASE EVENT DATE: 20220101
